FAERS Safety Report 9736979 (Version 1)
Quarter: 2013Q4

REPORT INFORMATION
  Report Type: Spontaneous
  Country: US (occurrence: US)
  Receive Date: 20131206
  Receipt Date: 20131206
  Transmission Date: 20140711
  Serious: No
  Sender: FDA-Public Use
  Company Number: US-GILEAD-2009-0022602

PATIENT
  Sex: Female
  Weight: 103.42 kg

DRUGS (13)
  1. LETAIRIS [Suspect]
     Indication: PULMONARY ARTERIAL HYPERTENSION
     Route: 048
     Dates: start: 20090611
  2. OXYGEN [Concomitant]
  3. TRIAMTERENE-HCTZ [Concomitant]
  4. FLECAINIDE ACETATE [Concomitant]
  5. SINGULAIR [Concomitant]
  6. XOPENEX HFA [Concomitant]
  7. SYNTHROID [Concomitant]
  8. CYCLOSPORINE [Concomitant]
  9. DEXAMETHASONE [Concomitant]
  10. PREMARIN [Concomitant]
  11. ZADITOR 0.025% EYE DROPS [Concomitant]
  12. FLUOROMEHTOLONE 0.1% DROPS [Concomitant]
  13. RESTASIS 0.05% EYE EMULSION [Concomitant]

REACTIONS (1)
  - Headache [Unknown]
